FAERS Safety Report 7979182-0 (Version None)
Quarter: 2011Q4

REPORT INFORMATION
  Report Type: 
  Country: None (occurrence: None)
  Receive Date: 20111206
  Receipt Date: 20111128
  Transmission Date: 20120403
  Serious: Yes (Disabling)
  Sender: FDA-Public Use
  Company Number: DSA_48271_2011

PATIENT
  Sex: Female
  Weight: 54.4316 kg

DRUGS (1)
  1. XENAZINE [Suspect]
     Indication: TOURETTE'S DISORDER
     Dosage: (1/2 OF A 12.5 MG TABLET DAILY ORAL)
     Route: 048
     Dates: start: 20111122, end: 20111126

REACTIONS (10)
  - SLEEP DISORDER [None]
  - MUSCULOSKELETAL STIFFNESS [None]
  - MOVEMENT DISORDER [None]
  - APHAGIA [None]
  - MUSCLE TIGHTNESS [None]
  - MYALGIA [None]
  - DECREASED APPETITE [None]
  - INSOMNIA [None]
  - RENAL PAIN [None]
  - FATIGUE [None]
